FAERS Safety Report 9972912 (Version 1)
Quarter: 2014Q1

REPORT INFORMATION
  Report Type: Spontaneous
  Country: US (occurrence: US)
  Receive Date: 20140306
  Receipt Date: 20140306
  Transmission Date: 20141002
  Serious: No
  Sender: FDA-Public Use
  Company Number: US-PFIZER INC-2014061094

PATIENT
  Age: 69 Year
  Sex: Male

DRUGS (3)
  1. INLYTA [Suspect]
     Indication: RENAL CELL CARCINOMA
     Dosage: 5 MG, 2X/DAY
     Dates: start: 20140125
  2. INLYTA [Suspect]
     Dosage: 7 MG, 2X/DAY, 2 X 1 MG TABLETS EVERY 12 HOURS ALONG WITH 5 MG
     Dates: start: 2014
  3. INLYTA [Suspect]
     Dosage: 7 MG, 2X/DAY, 2 X 1 MG TABLETS EVERY 12 HOURS ALONG WITH 5 MG
     Dates: end: 2014

REACTIONS (2)
  - Nausea [Unknown]
  - Vomiting [Unknown]
